FAERS Safety Report 5929909-4 (Version None)
Quarter: 2008Q4

REPORT INFORMATION
  Report Type: 
  Country: None (occurrence: None)
  Receive Date: 20081024
  Receipt Date: 20080826
  Transmission Date: 20090506
  Serious: Yes (Life-Threatening, Other)
  Sender: FDA-Public Use
  Company Number: CA-PFIZER INC-2008027317

PATIENT
  Sex: Male

DRUGS (19)
  1. CHAMPIX [Interacting]
     Indication: SMOKING CESSATION THERAPY
     Route: 048
     Dates: start: 20080128, end: 20080201
  2. MITOXANTRONE [Suspect]
     Indication: MULTIPLE SCLEROSIS
     Dates: start: 20080530
  3. CLOXACILLIN SODIUM [Suspect]
     Indication: HORDEOLUM
     Dates: start: 20080219
  4. REBIF [Interacting]
     Indication: MULTIPLE SCLEROSIS
     Route: 058
     Dates: start: 20070901, end: 20080201
  5. TOPAMAX [Suspect]
     Indication: CONVULSION
     Dates: start: 20080308, end: 20080502
  6. ZOPICLONE [Concomitant]
     Dates: start: 20071224
  7. BACLOFEN [Concomitant]
     Dates: start: 20060203
  8. CITALOPRAM HYDROBROMIDE [Concomitant]
     Dates: start: 20040111
  9. CLONAZEPAM [Concomitant]
     Dates: start: 20050408
  10. AMITRIPTYLINE HCL [Concomitant]
  11. LECITHIN [Concomitant]
  12. VITAMIN D [Concomitant]
  13. MULTI-VITAMINS [Concomitant]
  14. OMEGA 3-6-9 [Concomitant]
  15. B-50 [Concomitant]
  16. UBIDECARENONE [Concomitant]
  17. FLAXSEED OIL [Concomitant]
  18. GENERAL NUTRIENTS [Concomitant]
  19. COPAXONE [Concomitant]
     Indication: MULTIPLE SCLEROSIS
     Route: 058
     Dates: start: 20050901

REACTIONS (35)
  - ARTHRITIS BACTERIAL [None]
  - ASTHENIA [None]
  - BLOOD CHLORIDE INCREASED [None]
  - BURSITIS INFECTIVE [None]
  - COGNITIVE DISORDER [None]
  - CONVULSIVE THRESHOLD LOWERED [None]
  - COORDINATION ABNORMAL [None]
  - DRUG INTERACTION [None]
  - ELECTROENCEPHALOGRAM ABNORMAL [None]
  - FALL [None]
  - FATIGUE [None]
  - GAIT DISTURBANCE [None]
  - GRAND MAL CONVULSION [None]
  - HAEMATOCRIT DECREASED [None]
  - HAEMOGLOBIN DECREASED [None]
  - IMPAIRED DRIVING ABILITY [None]
  - IMPAIRED WORK ABILITY [None]
  - INFLUENZA LIKE ILLNESS [None]
  - JOINT INJURY [None]
  - LIVER FUNCTION TEST ABNORMAL [None]
  - MALAISE [None]
  - MEAN CELL HAEMOGLOBIN INCREASED [None]
  - MEAN CELL VOLUME ABNORMAL [None]
  - MULTIPLE SCLEROSIS RELAPSE [None]
  - MUSCULAR WEAKNESS [None]
  - NAUSEA [None]
  - NEUTROPHIL COUNT DECREASED [None]
  - NEUTROPHIL COUNT INCREASED [None]
  - NYSTAGMUS [None]
  - PLATELET COUNT INCREASED [None]
  - RED BLOOD CELL COUNT DECREASED [None]
  - RED CELL DISTRIBUTION WIDTH INCREASED [None]
  - WEIGHT DECREASED [None]
  - WHITE BLOOD CELL COUNT DECREASED [None]
  - WHITE BLOOD CELL COUNT INCREASED [None]
